FAERS Safety Report 8185133-9 (Version None)
Quarter: 2012Q1

REPORT INFORMATION
  Report Type: 
  Country: None (occurrence: None)
  Receive Date: 20120305
  Receipt Date: 20120301
  Transmission Date: 20120608
  Serious: Yes (Other)
  Sender: FDA-Public Use
  Company Number: US-PFIZER INC-2012016286

PATIENT
  Sex: Female
  Weight: 77.098 kg

DRUGS (11)
  1. ALBUTEROL SULFATE [Concomitant]
     Indication: ASTHMA
     Dosage: ONE PUFF EVERY FOUR HOURS
  2. CYMBALTA [Concomitant]
     Indication: DEPRESSION
     Dosage: 60 MG, 2X/DAY
  3. LITHIUM [Concomitant]
     Indication: DEPRESSION
     Dosage: 300 MG, 2X/DAY
  4. WELLBUTRIN [Concomitant]
     Indication: DEPRESSION
     Dosage: 150 MG, 2X/DAY
  5. LYRICA [Suspect]
     Indication: PAIN
  6. LYRICA [Suspect]
     Indication: MYALGIA
     Dosage: 75 MG, 2X/DAY
     Dates: start: 20110101
  7. XANAX [Concomitant]
     Indication: ANXIETY
     Dosage: 1 MG, 2X/DAY
  8. IBUPROFEN [Concomitant]
     Indication: PAIN
     Dosage: 800 MG, 3X/DAY
  9. ADVAIR DISKUS 100/50 [Concomitant]
     Indication: ASTHMA
     Dosage: UNK, AS NEEDED
  10. BUSPAR [Concomitant]
     Indication: DEPRESSION
     Dosage: 30 MG, 2X/DAY
  11. NORCO [Concomitant]
     Indication: PAIN
     Dosage: 10/325MG EVERY SIX HOURS

REACTIONS (5)
  - PAIN [None]
  - GAIT DISTURBANCE [None]
  - FATIGUE [None]
  - ACTIVITIES OF DAILY LIVING IMPAIRED [None]
  - MYALGIA [None]
